FAERS Safety Report 4941085-3 (Version None)
Quarter: 2006Q1

REPORT INFORMATION
  Report Type: 
  Country: None (occurrence: None)
  Receive Date: 20060310
  Receipt Date: 20060310
  Transmission Date: 20060701
  Serious: Yes (Hospitalization)
  Sender: FDA-Public Use
  Company Number: None

PATIENT
  Age: 59 Year
  Sex: Female
  Weight: 54 kg

DRUGS (19)
  1. KETEK [Suspect]
     Indication: CHRONIC SINUSITIS
     Dates: start: 20060105, end: 20060131
  2. MULTIVITAM [Concomitant]
  3. VITAMIN B COMPLEX CAP [Concomitant]
  4. ASCORBIC ACID [Concomitant]
  5. VITAMIN E [Concomitant]
  6. CALCIUM AND MAGNESIUM ALPHA LIPOIC ACID [Concomitant]
  7. L-CARNITINE [Concomitant]
  8. ACETYL L CARNITINE [Concomitant]
  9. CO-Q 10 [Concomitant]
  10. GLUTAMINE [Concomitant]
  11. SELENIUM SULFIDE [Concomitant]
  12. GRAPE SEED [Concomitant]
  13. FLAX SEED [Concomitant]
  14. EVENING PRIMROSE OIL [Concomitant]
  15. SINGULAIR [Concomitant]
  16. VITAMIN E [Concomitant]
  17. ACTIVELLA [Concomitant]
  18. NASACORT [Concomitant]
  19. ADVAIR DISKUS 100/50 [Concomitant]

REACTIONS (16)
  - ALANINE AMINOTRANSFERASE INCREASED [None]
  - ASPARTATE AMINOTRANSFERASE INCREASED [None]
  - ASTHENIA [None]
  - CHROMATURIA [None]
  - DECREASED APPETITE [None]
  - DIARRHOEA [None]
  - DIZZINESS [None]
  - LOSS OF CONSCIOUSNESS [None]
  - LYMPHOCYTE COUNT DECREASED [None]
  - MUCOSAL MEMBRANE HYPERPLASIA [None]
  - NAUSEA [None]
  - PROTEIN TOTAL DECREASED [None]
  - PRURITUS [None]
  - PYREXIA [None]
  - RETCHING [None]
  - SINUS DISORDER [None]
